FAERS Safety Report 6649161-4 (Version None)
Quarter: 2010Q1

REPORT INFORMATION
  Report Type: 
  Country: None (occurrence: None)
  Receive Date: 20100324
  Receipt Date: 20100311
  Transmission Date: 20100710
  Serious: Yes (Life-Threatening)
  Sender: FDA-Public Use
  Company Number: A0851020A

PATIENT
  Sex: Male
  Weight: 16 kg

DRUGS (1)
  1. CLAVULIN [Suspect]
     Indication: PHARYNGITIS
     Dosage: 3.5ML TWICE PER DAY
     Route: 065
     Dates: start: 20100310, end: 20100310

REACTIONS (3)
  - BLISTER [None]
  - LIP OEDEMA [None]
  - OEDEMA PERIPHERAL [None]
